FAERS Safety Report 7895636-X (Version None)
Quarter: 2011Q4

REPORT INFORMATION
  Report Type: 
  Country: None (occurrence: None)
  Receive Date: 20111106
  Receipt Date: 20110830
  Transmission Date: 20120403
  Serious: No
  Sender: FDA-Public Use
  Company Number: US-AMGEN-USASP2011044512

PATIENT
  Sex: Female

DRUGS (3)
  1. VITAMIN B12                        /00056201/ [Concomitant]
  2. ENBREL [Suspect]
     Indication: RHEUMATOID ARTHRITIS
     Dosage: 50 MG, QWK
     Dates: start: 20071130
  3. IRON [Concomitant]

REACTIONS (6)
  - SINUSITIS [None]
  - HYPOACUSIS [None]
  - INJECTION SITE PAIN [None]
  - SERUM FERRITIN DECREASED [None]
  - HEADACHE [None]
  - INJECTION SITE EXTRAVASATION [None]
